FAERS Safety Report 6801074-0 (Version None)
Quarter: 2010Q2

REPORT INFORMATION
  Report Type: 
  Country: None (occurrence: None)
  Receive Date: 20100624
  Receipt Date: 20100610
  Transmission Date: 20101027
  Serious: Yes (Death)
  Sender: FDA-Public Use
  Company Number: 010052

PATIENT
  Sex: 0

DRUGS (1)
  1. SAMSCA [Suspect]
     Dosage: 15 MG,ORAL; 30 MG,  ORAL;  45 MG,ORAL
     Route: 048

REACTIONS (1)
  - CARDIORENAL SYNDROME [None]
